FAERS Safety Report 23149747 (Version 1)
Quarter: 2023Q4

REPORT INFORMATION
  Report Type: Spontaneous
  Country: US (occurrence: None)
  Receive Date: 20231104
  Receipt Date: 20231104
  Transmission Date: 20240110
  Serious: Yes (Life-Threatening, Hospitalization)
  Sender: FDA-Public Use
  Company Number: None

PATIENT
  Age: 10 Year
  Sex: Male
  Weight: 68 kg

DRUGS (3)
  1. DOXEPIN [Suspect]
     Active Substance: DOXEPIN
     Indication: Insomnia
     Dosage: FREQUENCY : AT BEDTIME;?
     Route: 048
     Dates: start: 20211001, end: 20220419
  2. TOPIRAMATE [Suspect]
     Active Substance: TOPIRAMATE
  3. CLOBAZAM [Suspect]
     Active Substance: CLOBAZAM

REACTIONS (7)
  - Toxicity to various agents [None]
  - Mental status changes [None]
  - Ataxia [None]
  - Cognitive disorder [None]
  - Seizure [None]
  - Prescribed underdose [None]
  - Drug-genetic interaction [None]

NARRATIVE: CASE EVENT DATE: 20220420
